FAERS Safety Report 21328543 (Version 2)
Quarter: 2022Q4

REPORT INFORMATION
  Report Type: Report from Study
  Country: TW (occurrence: TW)
  Receive Date: 20220913
  Receipt Date: 20221019
  Transmission Date: 20230112
  Serious: Yes (Death)
  Sender: FDA-Public Use
  Company Number: TW-NOVARTISPH-NVSC2022TW205608

PATIENT
  Age: 65 Year
  Sex: Male

DRUGS (2)
  1. LUTETIUM LU-177 VIPIVOTIDE TETRAXETAN [Suspect]
     Active Substance: LUTETIUM LU-177 VIPIVOTIDE TETRAXETAN
     Indication: Hormone-refractory prostate cancer
     Dosage: 200 MCI
     Route: 065
     Dates: start: 20220824, end: 20220824
  2. RASBURICASE [Concomitant]
     Active Substance: RASBURICASE
     Indication: Hypouricaemia
     Dosage: 13 MG
     Route: 065
     Dates: start: 20220829, end: 20220903

REACTIONS (3)
  - Tumour lysis syndrome [Fatal]
  - Hepatic function abnormal [Fatal]
  - Melaena [Fatal]

NARRATIVE: CASE EVENT DATE: 20220910
